FAERS Safety Report 8530586 (Version 6)
Quarter: 2013Q1

REPORT INFORMATION
  Report Type: Spontaneous
  Country: US (occurrence: US)
  Receive Date: 20120425
  Receipt Date: 20130107
  Transmission Date: 20140127
  Serious: Yes (Hospitalization, Other)
  Sender: FDA-Public Use
  Company Number: US-TEVA-334125USA

PATIENT
  Age: 40 Year
  Sex: Female

DRUGS (1)
  1. CEFALEXIN [Suspect]
     Indication: BRONCHITIS
     Dosage: 2000 MILLIGRAM DAILY; TOOK FOR THREE DAYS/WAS ORDERED FOR 10 DAYS
     Dates: start: 20110614

REACTIONS (6)
  - Hepatic failure [Recovering/Resolving]
  - Hepatic enzyme increased [Recovering/Resolving]
  - Jaundice [Recovering/Resolving]
  - Abdominal pain [Recovering/Resolving]
  - Vomiting [Unknown]
  - Nausea [Recovering/Resolving]
